FAERS Safety Report 11882107 (Version 2)
Quarter: 2016Q1

REPORT INFORMATION
  Report Type: Spontaneous
  Country: JP (occurrence: JP)
  Receive Date: 20151231
  Receipt Date: 20160317
  Transmission Date: 20160526
  Serious: Yes (Hospitalization)
  Sender: FDA-Public Use
  Company Number: JP-BEH-2015057378

PATIENT
  Age: 64 Year
  Sex: Male
  Weight: 51 kg

DRUGS (9)
  1. DOBUTAMINE [Concomitant]
     Active Substance: DOBUTAMINE\DOBUTAMINE HYDROCHLORIDE
     Indication: CARDIAC FAILURE
     Route: 041
     Dates: start: 20151221, end: 20160105
  2. KN NO 1 [Concomitant]
     Route: 041
     Dates: start: 20151221, end: 20160104
  3. OTHER BETA-LACTAM ANTIBACTERIALS [Concomitant]
     Active Substance: UNSPECIFIED INGREDIENT
     Indication: SEPSIS
     Route: 041
     Dates: start: 20151221, end: 20151222
  4. RED BLOOD CELLS [Concomitant]
     Active Substance: HUMAN RED BLOOD CELL
     Dates: start: 20151217, end: 20160102
  5. PLATELETS [Concomitant]
     Active Substance: HUMAN PLATELET, ALLOGENIC
     Dates: start: 20151217, end: 20160102
  6. STORED BLOOD [Concomitant]
     Dates: start: 20151217, end: 20160102
  7. TEICOPLANIN [Concomitant]
     Active Substance: TEICOPLANIN
     Indication: SEPSIS
     Route: 041
     Dates: start: 20151223, end: 20151223
  8. HEPARIN SODIUM. [Concomitant]
     Active Substance: HEPARIN SODIUM
     Dosage: 2A
     Route: 041
     Dates: start: 20151221, end: 20160104
  9. SANGLOPOR IV INFUSION 2.5 [Suspect]
     Active Substance: HUMAN IMMUNOGLOBULIN G
     Indication: SEPSIS
     Route: 042
     Dates: start: 20151224, end: 20151224

REACTIONS (9)
  - Discomfort [Recovered/Resolved]
  - Anaphylactic shock [Recovered/Resolved]
  - Dyspnoea [Recovered/Resolved]
  - Chills [Recovered/Resolved]
  - Wheezing [Recovered/Resolved]
  - Pyrexia [Recovered/Resolved]
  - Tachycardia [Recovered/Resolved]
  - Syncope [Recovered/Resolved]
  - Hypotension [Recovered/Resolved]

NARRATIVE: CASE EVENT DATE: 20151224
